FAERS Safety Report 18467755 (Version 1)
Quarter: 2020Q4

REPORT INFORMATION
  Report Type: Spontaneous
  Country: US (occurrence: US)
  Receive Date: 20201104
  Receipt Date: 20201104
  Transmission Date: 20210114
  Serious: Yes (Other)
  Sender: FDA-Public Use
  Company Number: None

PATIENT
  Age: 23 Year
  Sex: Female
  Weight: 69.75 kg

DRUGS (16)
  1. KYLEENA (IUD) [Concomitant]
  2. ALBUTEROL INHALER [Concomitant]
     Active Substance: ALBUTEROL
  3. CELECOXIB 100MG [Concomitant]
     Active Substance: CELECOXIB
  4. ASCENIV [Suspect]
     Active Substance: HUMAN IMMUNOGLOBULIN G
     Indication: GUILLAIN-BARRE SYNDROME
     Dosage: ?          QUANTITY:1 INJECTION(S);OTHER FREQUENCY:2 DAYS/EVERY4WEEKS;?
     Route: 042
  5. DOXEPIN 10MG [Concomitant]
  6. ATIVAN [Concomitant]
     Active Substance: LORAZEPAM
  7. CYCLOBENZAPRINE 10MG [Concomitant]
     Active Substance: CYCLOBENZAPRINE
  8. ZYRTEC [Concomitant]
     Active Substance: CETIRIZINE HYDROCHLORIDE
  9. GABAPENTIN. [Concomitant]
     Active Substance: GABAPENTIN
  10. XARELTO [Concomitant]
     Active Substance: RIVAROXABAN
  11. B12 SHOTS [Concomitant]
     Active Substance: CYANOCOBALAMIN
  12. ADVAIR HFA [Concomitant]
     Active Substance: FLUTICASONE PROPIONATE\SALMETEROL XINAFOATE
  13. PROZAC [Concomitant]
     Active Substance: FLUOXETINE HYDROCHLORIDE
  14. OXYCODONE HCL 10MG [Concomitant]
     Active Substance: OXYCODONE HYDROCHLORIDE
  15. B6 TABLETS [Concomitant]
  16. VOLTAREN [Concomitant]
     Active Substance: DICLOFENAC SODIUM

REACTIONS (4)
  - Musculoskeletal stiffness [None]
  - Headache [None]
  - Pyrexia [None]
  - Photophobia [None]

NARRATIVE: CASE EVENT DATE: 20200802
